FAERS Safety Report 23575803 (Version 1)
Quarter: 2024Q1

REPORT INFORMATION
  Report Type: Spontaneous
  Country: ES (occurrence: ES)
  Receive Date: 20240228
  Receipt Date: 20240228
  Transmission Date: 20240409
  Serious: Yes (Hospitalization, Other)
  Sender: FDA-Public Use
  Company Number: None

PATIENT
  Age: 78 Year
  Sex: Male

DRUGS (5)
  1. VENLAFAXINE [Suspect]
     Active Substance: VENLAFAXINE HYDROCHLORIDE
     Indication: Depression
     Dosage: VENLAFAXINA (2664A), DURATION: 29 DAYS
     Route: 048
     Dates: start: 20230918, end: 20231016
  2. CETIRIZINE [Concomitant]
     Active Substance: CETIRIZINE HYDROCHLORIDE
     Indication: Allergy to sting
     Dosage: CETIRIZINA (2364A), DURATION: 11 DAYS
     Route: 048
     Dates: start: 20231006, end: 20231016
  3. LORAZEPAM [Concomitant]
     Active Substance: LORAZEPAM
     Indication: Depression
     Dosage: LORAZEPAM (1864A)
     Route: 048
     Dates: start: 20090812
  4. GABAPENTIN [Suspect]
     Active Substance: GABAPENTIN
     Indication: Pain
     Dosage: GABAPENTINA (2641A)
     Route: 048
     Dates: start: 202202, end: 20231016
  5. ZALDIAR [Interacting]
     Active Substance: ACETAMINOPHEN\TRAMADOL HYDROCHLORIDE
     Indication: Pain
     Dosage: 100 TABLETS, FORM STRENGTH: 37.5 MG/325 MG, DURATION: 53 DAYS
     Route: 048
     Dates: start: 20230825, end: 20231016

REACTIONS (1)
  - Serotonin syndrome [Recovered/Resolved]

NARRATIVE: CASE EVENT DATE: 20231016
